FAERS Safety Report 12153646 (Version 3)
Quarter: 2016Q1

REPORT INFORMATION
  Report Type: Spontaneous
  Country: CA (occurrence: CA)
  Receive Date: 20160307
  Receipt Date: 20160330
  Transmission Date: 20160526
  Serious: Yes (Hospitalization, Other)
  Sender: FDA-Public Use
  Company Number: CA-ROCHE-1721169

PATIENT
  Age: 62 Year
  Sex: Male

DRUGS (9)
  1. XOLAIR [Suspect]
     Active Substance: OMALIZUMAB
     Indication: ASTHMA
     Route: 058
     Dates: start: 20141205, end: 201602
  2. ADVAIR HFA [Concomitant]
     Active Substance: FLUTICASONE PROPIONATE\SALMETEROL XINAFOATE
  3. ASPIRIN. [Concomitant]
     Active Substance: ASPIRIN
  4. XOLAIR [Suspect]
     Active Substance: OMALIZUMAB
     Route: 058
     Dates: start: 201602
  5. FLOVENT [Concomitant]
     Active Substance: FLUTICASONE PROPIONATE
  6. CLONIDINE. [Concomitant]
     Active Substance: CLONIDINE
  7. SALBUTAMOL [Concomitant]
     Active Substance: ALBUTEROL
  8. SEEBRI [Suspect]
     Active Substance: GLYCOPYRRONIUM
     Indication: PRODUCT USED FOR UNKNOWN INDICATION
     Route: 065
  9. VENTOLIN [Concomitant]
     Active Substance: ALBUTEROL SULFATE

REACTIONS (14)
  - Anaemia [Unknown]
  - Malaise [Unknown]
  - Ligament sprain [Unknown]
  - Arthralgia [Unknown]
  - Lung neoplasm malignant [Unknown]
  - Back pain [Not Recovered/Not Resolved]
  - Fungal infection [Unknown]
  - Neck pain [Not Recovered/Not Resolved]
  - Vocal cord disorder [Unknown]
  - Musculoskeletal pain [Not Recovered/Not Resolved]
  - Drug ineffective [Unknown]
  - Pain in extremity [Unknown]
  - Eosinophilia [Unknown]
  - Oropharyngeal pain [Unknown]

NARRATIVE: CASE EVENT DATE: 20141205
